FAERS Safety Report 7926188-3 (Version None)
Quarter: 2011Q4

REPORT INFORMATION
  Report Type: 
  Country: None (occurrence: None)
  Receive Date: 20111118
  Receipt Date: 20110419
  Transmission Date: 20120403
  Serious: No
  Sender: FDA-Public Use
  Company Number: US-AMGEN-USASP2011020690

PATIENT
  Age: 68 Year
  Sex: Female

DRUGS (3)
  1. METHOTREXATE [Concomitant]
     Dates: start: 20070101
  2. ENBREL [Suspect]
     Indication: RHEUMATOID ARTHRITIS
  3. ENBREL [Suspect]
     Indication: SYSTEMIC LUPUS ERYTHEMATOSUS
     Dosage: 50 MG, QWK
     Dates: start: 20100301

REACTIONS (11)
  - SCIATICA [None]
  - OTORRHOEA [None]
  - LARYNGITIS [None]
  - WALKING AID USER [None]
  - COUGH [None]
  - BACK PAIN [None]
  - JOINT SWELLING [None]
  - MUSCULOSKELETAL PAIN [None]
  - ARTHRALGIA [None]
  - CONJUNCTIVITIS [None]
  - INJECTION SITE LACERATION [None]
